FAERS Safety Report 6057405-5 (Version None)
Quarter: 2009Q1

REPORT INFORMATION
  Report Type: 
  Country: None (occurrence: None)
  Receive Date: 20090126
  Receipt Date: 20090107
  Transmission Date: 20090719
  Serious: Yes (Death)
  Sender: FDA-Public Use
  Company Number: B0553720A

PATIENT
  Age: 69 Year
  Sex: Female

DRUGS (6)
  1. DIGOXIN [Suspect]
     Dosage: ORAL
     Route: 048
  2. ACETAMINOPHEN [Suspect]
  3. NORTRIPTYLINE HCL [Suspect]
  4. TRAZODONE HCL [Suspect]
  5. FRUSEMIDE (FORMULATION UNKNOWN) FUROSEMIDE) [Suspect]
  6. ETHANOL (FORMULATION UNKNOWN) (ALCOHOL) [Suspect]

REACTIONS (1)
  - COMPLETED SUICIDE [None]
